FAERS Safety Report 25438546 (Version 1)
Quarter: 2025Q2

REPORT INFORMATION
  Report Type: Spontaneous
  Country: CA (occurrence: CA)
  Receive Date: 20250616
  Receipt Date: 20250616
  Transmission Date: 20250717
  Serious: Yes (Death, Other)
  Sender: BRISTOL-MYERS SQUIBB COMPANY
  Company Number: CA-BRISTOL-MYERS SQUIBB COMPANY-2025-084608

PATIENT
  Age: 44 Year
  Sex: Female
  Weight: 78 kg

DRUGS (262)
  1. ORENCIA [Suspect]
     Active Substance: ABATACEPT
     Indication: Rheumatoid arthritis
     Route: 058
  2. ORENCIA [Suspect]
     Active Substance: ABATACEPT
  3. ORENCIA [Suspect]
     Active Substance: ABATACEPT
  4. ORENCIA [Suspect]
     Active Substance: ABATACEPT
  5. ORENCIA [Suspect]
     Active Substance: ABATACEPT
     Route: 058
  6. ORENCIA [Suspect]
     Active Substance: ABATACEPT
     Indication: Rheumatoid arthritis
     Route: 042
  7. ORENCIA [Suspect]
     Active Substance: ABATACEPT
     Route: 042
  8. TRIAMCINOLONE ACETONIDE [Suspect]
     Active Substance: TRIAMCINOLONE ACETONIDE
     Indication: Rheumatoid arthritis
     Route: 014
  9. ISOPROPYL ALCOHOL [Concomitant]
     Active Substance: ISOPROPYL ALCOHOL
     Indication: Product used for unknown indication
  10. ISOPROPYL ALCOHOL [Concomitant]
     Active Substance: ISOPROPYL ALCOHOL
     Route: 061
  11. HYRIMOZ [Concomitant]
     Active Substance: ADALIMUMAB-ADAZ
     Indication: Rheumatoid arthritis
     Route: 042
  12. HYRIMOZ [Concomitant]
     Active Substance: ADALIMUMAB-ADAZ
     Indication: Psoriatic arthropathy
     Route: 048
  13. HYRIMOZ [Concomitant]
     Active Substance: ADALIMUMAB-ADAZ
     Route: 058
  14. HYRIMOZ [Concomitant]
     Active Substance: ADALIMUMAB-ADAZ
  15. FOSAMAX [Concomitant]
     Active Substance: ALENDRONATE SODIUM
     Indication: Rheumatoid arthritis
     Route: 005
  16. FOSAMAX [Concomitant]
     Active Substance: ALENDRONATE SODIUM
  17. FOSAMAX [Concomitant]
     Active Substance: ALENDRONATE SODIUM
     Route: 048
  18. FOSAMAX [Concomitant]
     Active Substance: ALENDRONATE SODIUM
     Route: 016
  19. FOSAMAX [Concomitant]
     Active Substance: ALENDRONATE SODIUM
  20. FOSAMAX [Concomitant]
     Active Substance: ALENDRONATE SODIUM
     Route: 058
  21. FLUMETHASONE PIVALATE [Concomitant]
     Active Substance: FLUMETHASONE PIVALATE
     Indication: Rheumatoid arthritis
     Route: 058
  22. FLUMETHASONE PIVALATE [Concomitant]
     Active Substance: FLUMETHASONE PIVALATE
  23. ENTYVIO [Concomitant]
     Active Substance: VEDOLIZUMAB
     Indication: Product used for unknown indication
  24. DOXYCYCLINE [Concomitant]
     Active Substance: DOXYCYCLINE
     Indication: Product used for unknown indication
  25. DICLOFENAC SODIUM [Concomitant]
     Active Substance: DICLOFENAC SODIUM
     Indication: Product used for unknown indication
  26. CIMZIA [Concomitant]
     Active Substance: CERTOLIZUMAB PEGOL
     Indication: Rheumatoid arthritis
  27. CIMZIA [Concomitant]
     Active Substance: CERTOLIZUMAB PEGOL
     Indication: Psoriatic arthropathy
     Route: 042
  28. CIMZIA [Concomitant]
     Active Substance: CERTOLIZUMAB PEGOL
     Indication: Psoriasis
  29. CIMZIA [Concomitant]
     Active Substance: CERTOLIZUMAB PEGOL
     Route: 005
  30. CIMZIA [Concomitant]
     Active Substance: CERTOLIZUMAB PEGOL
     Route: 058
  31. CIMZIA [Concomitant]
     Active Substance: CERTOLIZUMAB PEGOL
     Route: 058
  32. CIMZIA [Concomitant]
     Active Substance: CERTOLIZUMAB PEGOL
     Route: 058
  33. CIMZIA [Concomitant]
     Active Substance: CERTOLIZUMAB PEGOL
     Route: 058
  34. CIMZIA [Concomitant]
     Active Substance: CERTOLIZUMAB PEGOL
  35. METHOTREXATE [Concomitant]
     Active Substance: METHOTREXATE
     Indication: Rheumatoid arthritis
  36. METHOTREXATE [Concomitant]
     Active Substance: METHOTREXATE
  37. METHOTREXATE [Concomitant]
     Active Substance: METHOTREXATE
     Route: 048
  38. METHOTREXATE [Concomitant]
     Active Substance: METHOTREXATE
  39. METHOTREXATE [Concomitant]
     Active Substance: METHOTREXATE
     Route: 048
  40. METHOTREXATE [Concomitant]
     Active Substance: METHOTREXATE
     Route: 048
  41. METHOTREXATE [Concomitant]
     Active Substance: METHOTREXATE
  42. METHOTREXATE [Concomitant]
     Active Substance: METHOTREXATE
  43. METHOTREXATE [Concomitant]
     Active Substance: METHOTREXATE
     Route: 013
  44. METHOTREXATE [Concomitant]
     Active Substance: METHOTREXATE
  45. METHOTREXATE [Concomitant]
     Active Substance: METHOTREXATE
  46. METHOTREXATE [Concomitant]
     Active Substance: METHOTREXATE
     Route: 048
  47. OXYCODONE TEREPHTHALATE [Concomitant]
     Active Substance: OXYCODONE TEREPHTHALATE
     Indication: Product used for unknown indication
  48. CETIRIZINE HYDROCHLORIDE AND PSEUDOEPHEDRINE HYDROCHLORIDE [Concomitant]
     Active Substance: CETIRIZINE HYDROCHLORIDE\PSEUDOEPHEDRINE HYDROCHLORIDE
     Indication: Rheumatoid arthritis
  49. CETIRIZINE HYDROCHLORIDE AND PSEUDOEPHEDRINE HYDROCHLORIDE [Concomitant]
     Active Substance: CETIRIZINE HYDROCHLORIDE\PSEUDOEPHEDRINE HYDROCHLORIDE
  50. CETIRIZINE HYDROCHLORIDE AND PSEUDOEPHEDRINE HYDROCHLORIDE [Concomitant]
     Active Substance: CETIRIZINE HYDROCHLORIDE\PSEUDOEPHEDRINE HYDROCHLORIDE
     Route: 016
  51. CETIRIZINE HYDROCHLORIDE AND PSEUDOEPHEDRINE HYDROCHLORIDE [Concomitant]
     Active Substance: CETIRIZINE HYDROCHLORIDE\PSEUDOEPHEDRINE HYDROCHLORIDE
  52. HUMIRA [Concomitant]
     Active Substance: ADALIMUMAB
     Indication: Rheumatoid arthritis
  53. HUMIRA [Concomitant]
     Active Substance: ADALIMUMAB
     Indication: Psoriatic arthropathy
     Route: 058
  54. HUMIRA [Concomitant]
     Active Substance: ADALIMUMAB
     Route: 058
  55. HUMIRA [Concomitant]
     Active Substance: ADALIMUMAB
     Route: 058
  56. HUMIRA [Concomitant]
     Active Substance: ADALIMUMAB
  57. HUMIRA [Concomitant]
     Active Substance: ADALIMUMAB
  58. APREMILAST [Concomitant]
     Active Substance: APREMILAST
     Indication: Product used for unknown indication
     Route: 048
  59. APREMILAST [Concomitant]
     Active Substance: APREMILAST
  60. DICLOFENAC DIETHYLAMINE [Concomitant]
     Active Substance: DICLOFENAC DIETHYLAMINE
     Indication: Product used for unknown indication
  61. RITUXIMAB [Concomitant]
     Active Substance: RITUXIMAB
     Indication: Rheumatoid arthritis
     Route: 042
  62. RITUXIMAB [Concomitant]
     Active Substance: RITUXIMAB
     Indication: Psoriatic arthropathy
  63. RITUXIMAB [Concomitant]
     Active Substance: RITUXIMAB
     Route: 058
  64. RITUXIMAB [Concomitant]
     Active Substance: RITUXIMAB
  65. RITUXIMAB [Concomitant]
     Active Substance: RITUXIMAB
     Route: 048
  66. RITUXIMAB [Concomitant]
     Active Substance: RITUXIMAB
     Route: 042
  67. RITUXIMAB [Concomitant]
     Active Substance: RITUXIMAB
     Route: 058
  68. RITUXIMAB [Concomitant]
     Active Substance: RITUXIMAB
     Route: 016
  69. RITUXIMAB [Concomitant]
     Active Substance: RITUXIMAB
     Route: 042
  70. RITUXIMAB [Concomitant]
     Active Substance: RITUXIMAB
     Route: 041
  71. PSEUDOEPHEDRINE [Concomitant]
     Active Substance: PSEUDOEPHEDRINE
     Indication: Product used for unknown indication
  72. CETIRIZINE HYDROCHLORIDE\PSEUDOEPHEDRINE HYDROCHLORIDE [Concomitant]
     Active Substance: CETIRIZINE HYDROCHLORIDE\PSEUDOEPHEDRINE HYDROCHLORIDE
     Indication: Rheumatoid arthritis
  73. DICLOFENAC SODIUM [Concomitant]
     Active Substance: DICLOFENAC SODIUM
     Indication: Product used for unknown indication
     Route: 058
  74. DICLOFENAC SODIUM [Concomitant]
     Active Substance: DICLOFENAC SODIUM
     Route: 047
  75. DICLOFENAC SODIUM [Concomitant]
     Active Substance: DICLOFENAC SODIUM
  76. OXYCODONE [Concomitant]
     Active Substance: OXYCODONE
     Indication: Product used for unknown indication
  77. DESOXIMETASONE [Concomitant]
     Active Substance: DESOXIMETASONE
     Indication: Rheumatoid arthritis
     Route: 058
  78. DESOXIMETASONE [Concomitant]
     Active Substance: DESOXIMETASONE
     Route: 003
  79. DESOXIMETASONE [Concomitant]
     Active Substance: DESOXIMETASONE
     Route: 003
  80. DESOXIMETASONE [Concomitant]
     Active Substance: DESOXIMETASONE
     Route: 061
  81. DESOXIMETASONE [Concomitant]
     Active Substance: DESOXIMETASONE
     Route: 003
  82. DESOXIMETASONE [Concomitant]
     Active Substance: DESOXIMETASONE
     Route: 048
  83. DESOXIMETASONE [Concomitant]
     Active Substance: DESOXIMETASONE
     Route: 058
  84. DESOXIMETASONE [Concomitant]
     Active Substance: DESOXIMETASONE
     Route: 048
  85. PHTHALYLSULFATHIAZOLE [Concomitant]
     Active Substance: PHTHALYLSULFATHIAZOLE
     Indication: Rheumatoid arthritis
     Route: 016
  86. PHTHALYLSULFATHIAZOLE [Concomitant]
     Active Substance: PHTHALYLSULFATHIAZOLE
     Route: 058
  87. PHTHALYLSULFATHIAZOLE [Concomitant]
     Active Substance: PHTHALYLSULFATHIAZOLE
     Route: 042
  88. PHTHALYLSULFATHIAZOLE [Concomitant]
     Active Substance: PHTHALYLSULFATHIAZOLE
     Route: 048
  89. PHTHALYLSULFATHIAZOLE [Concomitant]
     Active Substance: PHTHALYLSULFATHIAZOLE
     Route: 048
  90. PHTHALYLSULFATHIAZOLE [Concomitant]
     Active Substance: PHTHALYLSULFATHIAZOLE
  91. PHTHALYLSULFATHIAZOLE [Concomitant]
     Active Substance: PHTHALYLSULFATHIAZOLE
  92. PHTHALYLSULFATHIAZOLE [Concomitant]
     Active Substance: PHTHALYLSULFATHIAZOLE
     Route: 048
  93. PHTHALYLSULFATHIAZOLE [Concomitant]
     Active Substance: PHTHALYLSULFATHIAZOLE
  94. CELECOXIB [Concomitant]
     Active Substance: CELECOXIB
     Indication: Rheumatoid arthritis
  95. CELECOXIB [Concomitant]
     Active Substance: CELECOXIB
     Indication: Product used for unknown indication
  96. CELECOXIB [Concomitant]
     Active Substance: CELECOXIB
     Indication: Arthritis
  97. PREDNISONE [Concomitant]
     Active Substance: PREDNISONE
     Indication: Rheumatoid arthritis
     Route: 048
  98. PREDNISONE [Concomitant]
     Active Substance: PREDNISONE
     Indication: Psoriatic arthropathy
  99. PREDNISONE [Concomitant]
     Active Substance: PREDNISONE
     Indication: Condition aggravated
  100. PREDNISONE [Concomitant]
     Active Substance: PREDNISONE
     Route: 048
  101. PREDNISONE [Concomitant]
     Active Substance: PREDNISONE
     Route: 048
  102. PREDNISONE [Concomitant]
     Active Substance: PREDNISONE
     Route: 048
  103. PREDNISONE [Concomitant]
     Active Substance: PREDNISONE
  104. PREDNISONE [Concomitant]
     Active Substance: PREDNISONE
     Route: 048
  105. PREDNISONE [Concomitant]
     Active Substance: PREDNISONE
     Route: 042
  106. SIMPONI [Concomitant]
     Active Substance: GOLIMUMAB
     Indication: Rheumatoid arthritis
     Route: 052
  107. SIMPONI [Concomitant]
     Active Substance: GOLIMUMAB
     Route: 058
  108. SIMPONI [Concomitant]
     Active Substance: GOLIMUMAB
     Route: 042
  109. MYCOPHENOLATE MOFETIL [Concomitant]
     Active Substance: MYCOPHENOLATE MOFETIL
     Indication: Product used for unknown indication
  110. LEFLUNOMIDE [Concomitant]
     Active Substance: LEFLUNOMIDE
     Indication: Rheumatoid arthritis
     Route: 048
  111. LEFLUNOMIDE [Concomitant]
     Active Substance: LEFLUNOMIDE
     Route: 048
  112. LEFLUNOMIDE [Concomitant]
     Active Substance: LEFLUNOMIDE
  113. ASACOL [Concomitant]
     Active Substance: MESALAMINE
     Indication: Product used for unknown indication
  114. ALENDRONIC ACID [Concomitant]
     Active Substance: ALENDRONIC ACID
     Indication: Rheumatoid arthritis
     Route: 016
  115. ALENDRONIC ACID [Concomitant]
     Active Substance: ALENDRONIC ACID
     Route: 048
  116. ALENDRONIC ACID [Concomitant]
     Active Substance: ALENDRONIC ACID
     Route: 048
  117. STELARA [Concomitant]
     Active Substance: USTEKINUMAB
     Indication: Rheumatoid arthritis
  118. STELARA [Concomitant]
     Active Substance: USTEKINUMAB
     Route: 058
  119. STELARA [Concomitant]
     Active Substance: USTEKINUMAB
     Route: 042
  120. PREGABALIN [Concomitant]
     Active Substance: PREGABALIN
     Indication: Product used for unknown indication
  121. MOXIFLOXACIN HYDROCHLORIDE [Concomitant]
     Active Substance: MOXIFLOXACIN HYDROCHLORIDE
     Indication: Product used for unknown indication
     Route: 058
  122. DILTIAZEM HYDROCHLORIDE [Concomitant]
     Active Substance: DILTIAZEM HYDROCHLORIDE
     Indication: Product used for unknown indication
  123. DILTIAZEM HYDROCHLORIDE [Concomitant]
     Active Substance: DILTIAZEM HYDROCHLORIDE
     Route: 042
  124. DILTIAZEM HYDROCHLORIDE [Concomitant]
     Active Substance: DILTIAZEM HYDROCHLORIDE
  125. DILTIAZEM HYDROCHLORIDE [Concomitant]
     Active Substance: DILTIAZEM HYDROCHLORIDE
     Route: 048
  126. DIETARY SUPPLEMENT\HERBALS [Concomitant]
     Active Substance: DIETARY SUPPLEMENT\HERBALS
     Indication: Product used for unknown indication
  127. REMICADE [Concomitant]
     Active Substance: INFLIXIMAB
     Indication: Rheumatoid arthritis
     Route: 042
  128. REMICADE [Concomitant]
     Active Substance: INFLIXIMAB
     Route: 042
  129. REMICADE [Concomitant]
     Active Substance: INFLIXIMAB
  130. PSEUDOEPHEDRINE HYDROCHLORIDE [Concomitant]
     Active Substance: PSEUDOEPHEDRINE HYDROCHLORIDE
     Indication: Product used for unknown indication
  131. PSEUDOEPHEDRINE HYDROCHLORIDE [Concomitant]
     Active Substance: PSEUDOEPHEDRINE HYDROCHLORIDE
  132. PREGABALIN [Concomitant]
     Active Substance: PREGABALIN
     Indication: Product used for unknown indication
  133. PREDNISOLONE [Concomitant]
     Active Substance: PREDNISOLONE
     Indication: Product used for unknown indication
     Route: 048
  134. PREDNISOLONE [Concomitant]
     Active Substance: PREDNISOLONE
  135. PREDNISOLONE [Concomitant]
     Active Substance: PREDNISOLONE
  136. PREDNISOLONE [Concomitant]
     Active Substance: PREDNISOLONE
     Route: 048
  137. PERIOGARD [Concomitant]
     Active Substance: CHLORHEXIDINE GLUCONATE
     Indication: Product used for unknown indication
     Route: 048
  138. PERIOGARD [Concomitant]
     Active Substance: CHLORHEXIDINE GLUCONATE
     Route: 002
  139. OXYCODONE HYDROCHLORIDE [Concomitant]
     Active Substance: OXYCODONE HYDROCHLORIDE
     Indication: Product used for unknown indication
  140. OTEZLA [Concomitant]
     Active Substance: APREMILAST
     Indication: Product used for unknown indication
  141. OTEZLA [Concomitant]
     Active Substance: APREMILAST
     Route: 048
  142. NAPROXEN SODIUM [Concomitant]
     Active Substance: NAPROXEN SODIUM
     Indication: Rheumatoid arthritis
  143. LEFLUNOMIDE [Concomitant]
     Active Substance: LEFLUNOMIDE
     Indication: Rheumatoid arthritis
     Route: 048
  144. INFLIXIMAB [Concomitant]
     Active Substance: INFLIXIMAB
     Indication: Rheumatoid arthritis
     Route: 042
  145. INFLIXIMAB [Concomitant]
     Active Substance: INFLIXIMAB
     Route: 042
  146. INFLIXIMAB [Concomitant]
     Active Substance: INFLIXIMAB
     Route: 042
  147. HYDROXYCHLOROQUINE [Concomitant]
     Active Substance: HYDROXYCHLOROQUINE
     Indication: Rheumatoid arthritis
     Route: 048
  148. HYDROXYCHLOROQUINE [Concomitant]
     Active Substance: HYDROXYCHLOROQUINE
  149. HYDROXYCHLOROQUINE [Concomitant]
     Active Substance: HYDROXYCHLOROQUINE
  150. HYDROXYCHLOROQUINE [Concomitant]
     Active Substance: HYDROXYCHLOROQUINE
  151. HYDROXYCHLOROQUINE [Concomitant]
     Active Substance: HYDROXYCHLOROQUINE
  152. GOLIMUMAB [Concomitant]
     Active Substance: GOLIMUMAB
     Indication: Rheumatoid arthritis
  153. FOLIC ACID [Concomitant]
     Active Substance: FOLIC ACID
     Indication: Rheumatoid arthritis
     Route: 048
  154. FOLIC ACID [Concomitant]
     Active Substance: FOLIC ACID
  155. FOLIC ACID [Concomitant]
     Active Substance: FOLIC ACID
  156. FOLIC ACID [Concomitant]
     Active Substance: FOLIC ACID
  157. FOLIC ACID [Concomitant]
     Active Substance: FOLIC ACID
  158. FOLIC ACID [Concomitant]
     Active Substance: FOLIC ACID
  159. FOLIC ACID [Concomitant]
     Active Substance: FOLIC ACID
  160. FOLIC ACID [Concomitant]
     Active Substance: FOLIC ACID
     Route: 048
  161. FOLIC ACID [Concomitant]
     Active Substance: FOLIC ACID
     Route: 058
  162. FOLIC ACID [Concomitant]
     Active Substance: FOLIC ACID
  163. FOLIC ACID [Concomitant]
     Active Substance: FOLIC ACID
  164. FOLIC ACID [Concomitant]
     Active Substance: FOLIC ACID
     Route: 048
  165. FOLIC ACID [Concomitant]
     Active Substance: FOLIC ACID
  166. FOLIC ACID [Concomitant]
     Active Substance: FOLIC ACID
  167. FOLIC ACID [Concomitant]
     Active Substance: FOLIC ACID
  168. ERELZI [Concomitant]
     Active Substance: ETANERCEPT-SZZS
     Indication: Rheumatoid arthritis
     Route: 058
  169. ERELZI [Concomitant]
     Active Substance: ETANERCEPT-SZZS
  170. ERELZI [Concomitant]
     Active Substance: ETANERCEPT-SZZS
     Route: 058
  171. ENBREL [Concomitant]
     Active Substance: ETANERCEPT
     Indication: Rheumatoid arthritis
     Route: 058
  172. ENBREL [Concomitant]
     Active Substance: ETANERCEPT
     Indication: Psoriatic arthropathy
     Route: 058
  173. ENBREL [Concomitant]
     Active Substance: ETANERCEPT
     Route: 058
  174. ENBREL [Concomitant]
     Active Substance: ETANERCEPT
     Route: 058
  175. ENBREL [Concomitant]
     Active Substance: ETANERCEPT
     Route: 058
  176. DILTIAZEM [Concomitant]
     Active Substance: DILTIAZEM
     Indication: Product used for unknown indication
  177. DICLOFENAC POTASSIUM [Concomitant]
     Active Substance: DICLOFENAC POTASSIUM
     Indication: Product used for unknown indication
     Route: 058
  178. DICLOFENAC [Concomitant]
     Active Substance: DICLOFENAC
     Indication: Product used for unknown indication
     Route: 047
  179. COSENTYX [Concomitant]
     Active Substance: SECUKINUMAB
     Indication: Rheumatoid arthritis
     Route: 042
  180. COSENTYX [Concomitant]
     Active Substance: SECUKINUMAB
     Indication: Psoriatic arthropathy
     Route: 042
  181. CHLORAPREP [Concomitant]
     Active Substance: CHLORHEXIDINE GLUCONATE\ISOPROPYL ALCOHOL
     Indication: Product used for unknown indication
     Route: 061
  182. CHLORAPREP [Concomitant]
     Active Substance: CHLORHEXIDINE GLUCONATE\ISOPROPYL ALCOHOL
     Route: 061
  183. CHLORAPREP [Concomitant]
     Active Substance: CHLORHEXIDINE GLUCONATE\ISOPROPYL ALCOHOL
  184. CHLORHEXIDINE GLUCONATE [Concomitant]
     Active Substance: CHLORHEXIDINE GLUCONATE
     Indication: Product used for unknown indication
     Route: 002
  185. CHLORHEXIDINE GLUCONATE [Concomitant]
     Active Substance: CHLORHEXIDINE GLUCONATE
     Route: 061
  186. CHLORHEXIDINE GLUCONATE [Concomitant]
     Active Substance: CHLORHEXIDINE GLUCONATE
  187. CHLORHEXIDINE GLUCONATE [Concomitant]
     Active Substance: CHLORHEXIDINE GLUCONATE
     Route: 048
  188. CERTOLIZUMAB PEGOL [Concomitant]
     Active Substance: CERTOLIZUMAB PEGOL
     Indication: Product used for unknown indication
  189. CALCIUM GLUBIONATE [Concomitant]
     Active Substance: CALCIUM GLUBIONATE
     Indication: Product used for unknown indication
     Route: 016
  190. APREPITANT [Concomitant]
     Active Substance: APREPITANT
     Indication: Product used for unknown indication
     Route: 042
  191. APREPITANT [Concomitant]
     Active Substance: APREPITANT
     Route: 048
  192. APREPITANT [Concomitant]
     Active Substance: APREPITANT
  193. APREPITANT [Concomitant]
     Active Substance: APREPITANT
     Route: 042
  194. PREDNISONE [Concomitant]
     Active Substance: PREDNISONE
     Indication: Systemic lupus erythematosus
     Route: 048
  195. PREDNISONE [Concomitant]
     Active Substance: PREDNISONE
     Indication: Synovitis
     Route: 048
  196. PREDNISONE [Concomitant]
     Active Substance: PREDNISONE
     Indication: Rheumatoid arthritis
     Route: 048
  197. PREDNISONE [Concomitant]
     Active Substance: PREDNISONE
     Indication: Psoriatic arthropathy
     Route: 048
  198. PREDNISONE [Concomitant]
     Active Substance: PREDNISONE
     Indication: Pemphigus
  199. PREDNISONE [Concomitant]
     Active Substance: PREDNISONE
     Indication: Inflammation
  200. PREDNISONE [Concomitant]
     Active Substance: PREDNISONE
     Indication: Bursitis
     Route: 048
  201. ACTEMRA [Concomitant]
     Active Substance: TOCILIZUMAB
     Indication: Rheumatoid arthritis
     Route: 048
  202. ACTEMRA [Concomitant]
     Active Substance: TOCILIZUMAB
     Route: 042
  203. ACTEMRA [Concomitant]
     Active Substance: TOCILIZUMAB
     Route: 042
  204. ACTEMRA [Concomitant]
     Active Substance: TOCILIZUMAB
     Route: 042
  205. ACTEMRA [Concomitant]
     Active Substance: TOCILIZUMAB
     Route: 042
  206. ACTEMRA [Concomitant]
     Active Substance: TOCILIZUMAB
  207. ACTEMRA [Concomitant]
     Active Substance: TOCILIZUMAB
     Route: 058
  208. ACTEMRA [Concomitant]
     Active Substance: TOCILIZUMAB
  209. ACTEMRA [Concomitant]
     Active Substance: TOCILIZUMAB
     Route: 061
  210. ACTEMRA [Concomitant]
     Active Substance: TOCILIZUMAB
     Route: 058
  211. ACTEMRA [Concomitant]
     Active Substance: TOCILIZUMAB
     Route: 016
  212. ACTEMRA [Concomitant]
     Active Substance: TOCILIZUMAB
  213. ACTEMRA [Concomitant]
     Active Substance: TOCILIZUMAB
     Route: 042
  214. ACTEMRA [Concomitant]
     Active Substance: TOCILIZUMAB
     Route: 042
  215. ACTEMRA [Concomitant]
     Active Substance: TOCILIZUMAB
     Route: 042
  216. ACETAMINOPHEN\OXYCODONE HYDROCHLORIDE [Concomitant]
     Active Substance: ACETAMINOPHEN\OXYCODONE HYDROCHLORIDE
     Indication: Product used for unknown indication
  217. ACETAMINOPHEN [Concomitant]
     Active Substance: ACETAMINOPHEN
     Indication: Rheumatoid arthritis
  218. ACETAMINOPHEN [Concomitant]
     Active Substance: ACETAMINOPHEN
     Indication: Pyrexia
  219. ACETAMINOPHEN [Concomitant]
     Active Substance: ACETAMINOPHEN
     Indication: Pain
  220. SULFAMETHOXAZOLE [Concomitant]
     Active Substance: SULFAMETHOXAZOLE
     Indication: Rheumatoid arthritis
  221. SULFAMETHOXAZOLE\TRIMETHOPRIM [Concomitant]
     Active Substance: SULFAMETHOXAZOLE\TRIMETHOPRIM
     Indication: Product used for unknown indication
     Route: 067
  222. SULFASALAZINE [Concomitant]
     Active Substance: SULFASALAZINE
     Indication: Rheumatoid arthritis
     Route: 048
  223. SULFASALAZINE [Concomitant]
     Active Substance: SULFASALAZINE
     Route: 048
  224. SULFASALAZINE [Concomitant]
     Active Substance: SULFASALAZINE
     Route: 048
  225. SULFASALAZINE [Concomitant]
     Active Substance: SULFASALAZINE
     Route: 048
  226. SULFASALAZINE [Concomitant]
     Active Substance: SULFASALAZINE
  227. SULFASALAZINE [Concomitant]
     Active Substance: SULFASALAZINE
     Route: 048
  228. SULFASALAZINE [Concomitant]
     Active Substance: SULFASALAZINE
  229. SULFASALAZINE [Concomitant]
     Active Substance: SULFASALAZINE
  230. SULFASALAZINE [Concomitant]
     Active Substance: SULFASALAZINE
     Route: 058
  231. SULFASALAZINE [Concomitant]
     Active Substance: SULFASALAZINE
     Route: 048
  232. SULFASALAZINE [Concomitant]
     Active Substance: SULFASALAZINE
  233. SULFASALAZINE [Concomitant]
     Active Substance: SULFASALAZINE
     Route: 058
  234. SULFASALAZINE [Concomitant]
     Active Substance: SULFASALAZINE
     Route: 048
  235. SULFASALAZINE [Concomitant]
     Active Substance: SULFASALAZINE
     Route: 058
  236. SULFASALAZINE [Concomitant]
     Active Substance: SULFASALAZINE
     Route: 048
  237. SULFASALAZINE [Concomitant]
     Active Substance: SULFASALAZINE
     Route: 048
  238. SULFASALAZINE [Concomitant]
     Active Substance: SULFASALAZINE
     Route: 048
  239. SULFASALAZINE [Concomitant]
     Active Substance: SULFASALAZINE
     Route: 048
  240. SULFASALAZINE [Concomitant]
     Active Substance: SULFASALAZINE
  241. SULFASALAZINE [Concomitant]
     Active Substance: SULFASALAZINE
     Route: 048
  242. SULFASALAZINE [Concomitant]
     Active Substance: SULFASALAZINE
  243. SULFASALAZINE [Concomitant]
     Active Substance: SULFASALAZINE
     Route: 048
  244. SULFASALAZINE [Concomitant]
     Active Substance: SULFASALAZINE
  245. SULFASALAZINE [Concomitant]
     Active Substance: SULFASALAZINE
  246. SULFASALAZINE [Concomitant]
     Active Substance: SULFASALAZINE
     Route: 048
  247. SULFASALAZINE [Concomitant]
     Active Substance: SULFASALAZINE
     Route: 048
  248. SULFASALAZINE [Concomitant]
     Active Substance: SULFASALAZINE
     Route: 048
  249. SULFASALAZINE [Concomitant]
     Active Substance: SULFASALAZINE
     Route: 048
  250. SULFASALAZINE [Concomitant]
     Active Substance: SULFASALAZINE
     Route: 048
  251. SULFASALAZINE [Concomitant]
     Active Substance: SULFASALAZINE
     Route: 048
  252. TOFACITINIB CITRATE [Concomitant]
     Active Substance: TOFACITINIB CITRATE
     Indication: Rheumatoid arthritis
     Route: 048
  253. TOFACITINIB CITRATE [Concomitant]
     Active Substance: TOFACITINIB CITRATE
     Indication: Psoriatic arthropathy
     Route: 048
  254. TOFACITINIB CITRATE [Concomitant]
     Active Substance: TOFACITINIB CITRATE
     Route: 058
  255. TOFACITINIB CITRATE [Concomitant]
     Active Substance: TOFACITINIB CITRATE
  256. VITAMIN C [Concomitant]
     Active Substance: ASCORBIC ACID
     Indication: Product used for unknown indication
  257. PREDNISONE [Concomitant]
     Active Substance: PREDNISONE
     Indication: Rheumatoid arthritis
     Route: 048
  258. XELJANZ [Concomitant]
     Active Substance: TOFACITINIB CITRATE
     Indication: Rheumatoid arthritis
  259. XELJANZ [Concomitant]
     Active Substance: TOFACITINIB CITRATE
  260. XELJANZ [Concomitant]
     Active Substance: TOFACITINIB CITRATE
  261. XELJANZ [Concomitant]
     Active Substance: TOFACITINIB CITRATE
  262. XELJANZ [Concomitant]
     Active Substance: TOFACITINIB CITRATE
     Route: 048

REACTIONS (1)
  - Death [Fatal]
